FAERS Safety Report 8360328-X (Version None)
Quarter: 2012Q1

REPORT INFORMATION
  Report Type: 
  Country: None (occurrence: None)
  Receive Date: 20120323
  Receipt Date: 20111130
  Transmission Date: 20120608
  Serious: Yes (Hospitalization, Other)
  Sender: FDA-Public Use
  Company Number: 163-21880-11091283

PATIENT
  Age: 76 Year
  Sex: Female
  Weight: 82.5547 kg

DRUGS (11)
  1. ASPIRIN [Concomitant]
  2. OXYBUTYNIN [Concomitant]
  3. REVLIMID [Suspect]
     Indication: MYELODYSPLASTIC SYNDROME
     Dosage: 5 MG, 21/7, PO; PO
     Route: 048
     Dates: start: 20111128
  4. REVLIMID [Suspect]
     Indication: MYELODYSPLASTIC SYNDROME
     Dosage: 5 MG, 21/7, PO; PO
     Route: 048
     Dates: start: 20110813, end: 20111122
  5. REGLAN [Concomitant]
  6. CARDURA [Concomitant]
  7. LORTAB [Concomitant]
  8. ZOFRAN (ONADSETRON HYDROCHLORIDE) [Concomitant]
  9. ANTIVERT (MECLOZINE) [Concomitant]
  10. PREDNISONE TAB [Concomitant]
  11. DITROPAN [Concomitant]

REACTIONS (2)
  - FULL BLOOD COUNT DECREASED [None]
  - HOT FLUSH [None]
